FAERS Safety Report 20677500 (Version 1)
Quarter: 2022Q2

REPORT INFORMATION
  Report Type: Spontaneous
  Country: CO (occurrence: CO)
  Receive Date: 20220406
  Receipt Date: 20220406
  Transmission Date: 20220721
  Serious: Yes (Hospitalization, Other)
  Sender: FDA-Public Use
  Company Number: CO-SUN PHARMACEUTICAL INDUSTRIES LTD-2022R1-331484

PATIENT
  Age: 16 Year
  Sex: Female
  Weight: 72 kg

DRUGS (3)
  1. NIFEDIPINE [Suspect]
     Active Substance: NIFEDIPINE
     Indication: Abnormal organ maturation
     Dosage: 30 MILLIGRAM, BID
     Route: 065
  2. FUROSEMIDE [Suspect]
     Active Substance: FUROSEMIDE
     Indication: Pulmonary oedema
     Dosage: 40 MILLIGRAM
     Route: 042
  3. BETAMETHASONE [Suspect]
     Active Substance: BETAMETHASONE
     Indication: Abnormal organ maturation
     Dosage: 12 MILLIGRAM, OD
     Route: 030

REACTIONS (3)
  - Exposure during pregnancy [Unknown]
  - Pulmonary oedema [Recovering/Resolving]
  - Premature delivery [Unknown]
